FAERS Safety Report 5565282-1 (Version None)
Quarter: 2007Q4

REPORT INFORMATION
  Report Type: 
  Country: None (occurrence: None)
  Receive Date: 20071218
  Receipt Date: 20011127
  Transmission Date: 20080405
  Serious: Yes (Death)
  Sender: FDA-Public Use
  Company Number: JP-ROCHE-300676

PATIENT
  Age: 88 Year
  Sex: Female

DRUGS (6)
  1. TORSEMIDE [Suspect]
     Route: 048
     Dates: start: 20010609, end: 20010918
  2. URALYT U [Suspect]
     Route: 048
     Dates: start: 20010601, end: 20010918
  3. POLYCARBOPHIL [Concomitant]
     Indication: IRRITABLE BOWEL SYNDROME
     Route: 048
     Dates: start: 20010613, end: 20010918
  4. OLOPATADINE HYDROCHLORIDE [Concomitant]
     Indication: GOUT
     Route: 048
     Dates: start: 20010530, end: 20011018
  5. NORVASC [Concomitant]
     Indication: HYPERTENSION
     Route: 048
     Dates: start: 19961225, end: 20011018
  6. MERCAZOLE [Concomitant]
     Indication: HYPERTHYROIDISM
     Route: 048
     Dates: start: 19991110, end: 20011105

REACTIONS (3)
  - AORTIC VALVE STENOSIS [None]
  - CARDIAC FAILURE [None]
  - DRUG ERUPTION [None]
